FAERS Safety Report 15504458 (Version 1)
Quarter: 2018Q4

REPORT INFORMATION
  Report Type: Spontaneous
  Country: US (occurrence: US)
  Receive Date: 20181016
  Receipt Date: 20181016
  Transmission Date: 20190205
  Serious: Yes (Death, Other)
  Sender: FDA-Public Use
  Company Number: US-ACCORD-073280

PATIENT
  Sex: Male

DRUGS (6)
  1. LISINOPRIL. [Concomitant]
     Active Substance: LISINOPRIL
     Dosage: DOSE: 5 MG ONCE A DAY
  2. ISOSORBIDE. [Concomitant]
     Active Substance: ISOSORBIDE
     Dosage: DOSE: 10 MG TWICE A DAY
  3. IBUPROFEN. [Concomitant]
     Active Substance: IBUPROFEN
     Dosage: DOSE: 400 MG TWICE A DAY
  4. IRON [Concomitant]
     Active Substance: IRON
     Dosage: DOSE: 324 MG ONCE A DAY
  5. HYDROCHLOROTHIAZIDE. [Suspect]
     Active Substance: HYDROCHLOROTHIAZIDE
     Indication: OEDEMA
     Dosage: STRENGTH: 12.5 MG?DOSE: 12.5 MG TWO TIMES A DAY
     Route: 048
     Dates: start: 20180510
  6. PRILOSEC [Concomitant]
     Active Substance: OMEPRAZOLE MAGNESIUM
     Dosage: DOSE: 20 MG ONCE A DAY

REACTIONS (2)
  - Fall [Unknown]
  - Myocardial infarction [Fatal]
